FAERS Safety Report 5005735-8 (Version None)
Quarter: 2006Q2

REPORT INFORMATION
  Report Type: 
  Country: None (occurrence: None)
  Receive Date: 20060515
  Receipt Date: 20060501
  Transmission Date: 20061013
  Serious: Yes (Hospitalization)
  Sender: FDA-Public Use
  Company Number: 224654

PATIENT
  Age: 64 Year
  Sex: Male

DRUGS (15)
  1. AVASTIN [Suspect]
     Indication: COLORECTAL CANCER METASTATIC
     Dosage: 459 MG, Q3W,
     Dates: start: 20060223, end: 20060316
  2. CAPECITABINE (CAPECITABINE) [Suspect]
     Indication: COLORECTAL CANCER METASTATIC
     Dosage: 1300 MG, BID, ORAL
     Route: 048
     Dates: start: 20060223, end: 20060302
  3. ERBITUX [Suspect]
     Indication: COLORECTAL CANCER METASTATIC
     Dosage: SEE IMAGE
     Dates: start: 20060302, end: 20060316
  4. ERBITUX [Suspect]
     Indication: COLORECTAL CANCER METASTATIC
     Dosage: SEE IMAGE
     Dates: start: 20060223
  5. OXALIPLATIN (OXALIPLATIN) [Suspect]
     Indication: COLORECTAL CANCER METASTATIC
     Dosage: 213 MG, Q3W,
     Dates: start: 20060223, end: 20060223
  6. IMODIUM [Concomitant]
  7. ZOFRAN [Concomitant]
  8. ZINC (ZINC NOS) [Concomitant]
  9. ASCORBIC ACID [Concomitant]
  10. MVI (MULTIVITAMINS NOS) [Concomitant]
  11. METOPROLOL TARTRATE [Concomitant]
  12. HCTZ (HYDROCHLOROTHIAZIDE) [Concomitant]
  13. IBUPROFEN [Concomitant]
  14. COMPAZINE [Concomitant]
  15. ATIVAN [Concomitant]

REACTIONS (8)
  - CHILLS [None]
  - CHOLANGITIS [None]
  - DEHYDRATION [None]
  - DIARRHOEA [None]
  - DIZZINESS [None]
  - DYSPNOEA [None]
  - FATIGUE [None]
  - URINARY TRACT INFECTION [None]
